FAERS Safety Report 7341767-2 (Version None)
Quarter: 2011Q1

REPORT INFORMATION
  Report Type: 
  Country: None (occurrence: None)
  Receive Date: 20110309
  Receipt Date: 20110304
  Transmission Date: 20110831
  Serious: Yes (Disabling, Other)
  Sender: FDA-Public Use
  Company Number: US-PFIZER INC-2010182463

PATIENT
  Sex: Male

DRUGS (1)
  1. CHANTIX [Suspect]
     Indication: SMOKING CESSATION THERAPY
     Dosage: 1 MG, UNK
     Dates: start: 20080410, end: 20090301

REACTIONS (13)
  - AMNESIA [None]
  - AGGRESSION [None]
  - SUICIDAL IDEATION [None]
  - MANIA [None]
  - DELUSIONAL PERCEPTION [None]
  - PANIC ATTACK [None]
  - MENTAL DISORDER [None]
  - ANXIETY [None]
  - BIPOLAR DISORDER [None]
  - INTERMITTENT EXPLOSIVE DISORDER [None]
  - PARANOIA [None]
  - PSYCHOTIC BEHAVIOUR [None]
  - DEPRESSION [None]
